FAERS Safety Report 14022730 (Version 2)
Quarter: 2019Q1

REPORT INFORMATION
  Report Type: Spontaneous
  Country: GB (occurrence: GB)
  Receive Date: 20170929
  Receipt Date: 20190202
  Transmission Date: 20190417
  Serious: Yes (Other)
  Sender: FDA-Public Use
  Company Number: GB-ARBOR PHARMACEUTICALS, LLC-GB-2017ARB000893

PATIENT
  Age: 43 Year
  Sex: Female

DRUGS (3)
  1. TRIPTODUR [Suspect]
     Active Substance: TRIPTORELIN
     Indication: TRANSGENDER HORMONAL THERAPY
     Dosage: UNK
     Route: 065
  2. OESTRADIOL VALERATE [Suspect]
     Active Substance: ESTRADIOL VALERATE
     Indication: TRANSGENDER HORMONAL THERAPY
     Dosage: UNK
     Route: 065
  3. TRIPTODUR [Suspect]
     Active Substance: TRIPTORELIN
     Indication: OFF LABEL USE

REACTIONS (6)
  - Scleroderma [Unknown]
  - Off label use [Unknown]
  - Interstitial lung disease [Unknown]
  - Raynaud^s phenomenon [Unknown]
  - Myositis [Unknown]
  - Gastrooesophageal reflux disease [Unknown]
